FAERS Safety Report 15498119 (Version 1)
Quarter: 2018Q4

REPORT INFORMATION
  Report Type: Spontaneous
  Country: CN (occurrence: CN)
  Receive Date: 20181015
  Receipt Date: 20181015
  Transmission Date: 20190205
  Serious: Yes (Hospitalization, Other)
  Sender: FDA-Public Use
  Company Number: CN-BAUSCH-BL-2018-027857

PATIENT
  Sex: Male

DRUGS (1)
  1. DEXAMETHASONE. [Suspect]
     Active Substance: DEXAMETHASONE
     Indication: 11-BETA-HYDROXYLASE DEFICIENCY
     Dosage: FOR MORE THAN 10 YEARS
     Route: 065

REACTIONS (3)
  - Overdose [Recovering/Resolving]
  - Cushing^s syndrome [Recovering/Resolving]
  - Incorrect product administration duration [Recovered/Resolved]
